FAERS Safety Report 18079505 (Version 1)
Quarter: 2020Q3

REPORT INFORMATION
  Report Type: Spontaneous
  Country: US (occurrence: US)
  Receive Date: 20200727
  Receipt Date: 20200727
  Transmission Date: 20201103
  Serious: Yes (Death, Life-Threatening, Hospitalization)
  Sender: FDA-Public Use
  Company Number: None

PATIENT
  Age: 71 Year
  Sex: Male
  Weight: 49.9 kg

DRUGS (3)
  1. ZANTAC [Suspect]
     Active Substance: RANITIDINE HYDROCHLORIDE
     Indication: DYSPEPSIA
     Route: 048
  2. BILE DICT STENT [Suspect]
     Active Substance: DEVICE
     Dates: start: 20171229, end: 20180515
  3. RANITIDINE. [Suspect]
     Active Substance: RANITIDINE

REACTIONS (2)
  - Pancreatic carcinoma [None]
  - Hepatic cancer [None]

NARRATIVE: CASE EVENT DATE: 20160216
